FAERS Safety Report 23825346 (Version 1)
Quarter: 2024Q2

REPORT INFORMATION
  Report Type: Spontaneous
  Country: US (occurrence: US)
  Receive Date: 20240507
  Receipt Date: 20240507
  Transmission Date: 20240716
  Serious: Yes (Other)
  Sender: FDA-Public Use
  Company Number: US-INCYTE CORPORATION-2024IN004706

PATIENT

DRUGS (1)
  1. JAKAFI [Suspect]
     Active Substance: RUXOLITINIB
     Indication: Polycythaemia vera
     Dosage: 5MG BID IN ONE DAY AND 10MG BID THE OTHER DAY
     Route: 065
     Dates: start: 202310

REACTIONS (3)
  - Cardiomyopathy [Unknown]
  - Ejection fraction decreased [Unknown]
  - Coronary artery disease [Unknown]
